FAERS Safety Report 6695477-5 (Version None)
Quarter: 2010Q2

REPORT INFORMATION
  Report Type: 
  Country: None (occurrence: None)
  Receive Date: 20100422
  Receipt Date: 20100422
  Transmission Date: 20101027
  Serious: Yes (Hospitalization)
  Sender: FDA-Public Use
  Company Number: None

PATIENT
  Sex: Female
  Weight: 71.9 kg

DRUGS (2)
  1. TAXOL [Suspect]
     Dosage: 144 MG
     Dates: end: 20090605
  2. HERCEPTIN [Suspect]
     Dosage: 137 MG
     Dates: end: 20090605

REACTIONS (2)
  - PNEUMONIA [None]
  - PNEUMONITIS [None]
